FAERS Safety Report 9011167 (Version 1)
Quarter: 2013Q1

REPORT INFORMATION
  Report Type: Spontaneous
  Country: US (occurrence: US)
  Receive Date: 20130111
  Receipt Date: 20130111
  Transmission Date: 20140127
  Serious: Yes (Other)
  Sender: FDA-Public Use
  Company Number: US-009507513-1301USA001450

PATIENT
  Age: 68 Year
  Sex: Female

DRUGS (8)
  1. MONTELUKAST SODIUM [Suspect]
     Indication: ASTHMA
  2. PREDNISONE [Suspect]
     Indication: ILL-DEFINED DISORDER
  3. BUDESONIDE [Suspect]
     Indication: POLYP
  4. TRIAMCINOLONE ACETONIDE [Suspect]
     Indication: SINUSITIS
     Route: 055
  5. ZITHROMAX [Suspect]
     Route: 048
  6. ZYRTEC [Suspect]
     Dosage: 10 MG, 1 IN 1D
     Route: 048
  7. FEXOFENADINE HYDROCHLORIDE [Concomitant]
  8. DILTIAZEM HYDROCHLORIDE [Concomitant]
     Indication: GLAUCOMA

REACTIONS (8)
  - Tachycardia [Unknown]
  - Rash [Unknown]
  - Nasal congestion [Unknown]
  - Increased steroid activity [Unknown]
  - Glaucoma [Unknown]
  - Dry throat [Unknown]
  - Drug interaction [Unknown]
  - Drug ineffective [Unknown]
